FAERS Safety Report 20368935 (Version 1)
Quarter: 2022Q1

REPORT INFORMATION
  Report Type: Spontaneous
  Country: US (occurrence: None)
  Receive Date: 20220121
  Receipt Date: 20220121
  Transmission Date: 20220423
  Serious: No
  Sender: FDA-Public Use
  Company Number: None

PATIENT
  Age: 50 Year
  Sex: Male

DRUGS (1)
  1. EVEROLIMUS [Suspect]
     Active Substance: EVEROLIMUS
     Indication: Renal transplant
     Dosage: FREQUENCY : TWICE A DAY;?
     Route: 048
     Dates: start: 202012

REACTIONS (11)
  - Urinary tract infection [None]
  - Urethral stenosis [None]
  - Stomatitis [None]
  - Hiccups [None]
  - Nerve injury [None]
  - Nausea [None]
  - Vomiting [None]
  - Diarrhoea [None]
  - Back pain [None]
  - Urinary retention [None]
  - Therapy interrupted [None]

NARRATIVE: CASE EVENT DATE: 20220101
